FAERS Safety Report 23969585 (Version 1)
Quarter: 2024Q2

REPORT INFORMATION
  Report Type: Report from Study
  Country: US (occurrence: US)
  Receive Date: 20240613
  Receipt Date: 20240613
  Transmission Date: 20240716
  Serious: Yes (Hospitalization, Other)
  Sender: FDA-Public Use
  Company Number: US-ABBVIE-5797376

PATIENT
  Sex: Female

DRUGS (3)
  1. RINVOQ [Suspect]
     Active Substance: UPADACITINIB
     Indication: Crohn^s disease
     Dosage: FORM STRENGTH: 45 MILLIGRAMS
     Route: 048
     Dates: start: 20231209, end: 202404
  2. RINVOQ [Suspect]
     Active Substance: UPADACITINIB
     Indication: Crohn^s disease
     Dosage: FORM STRENGTH: 30 MILLIGRAMS
     Route: 048
     Dates: start: 202404
  3. VITAMINS [Concomitant]
     Active Substance: VITAMINS
     Indication: Product used for unknown indication

REACTIONS (10)
  - Intestinal stenosis [Unknown]
  - Abdominal distension [Unknown]
  - Stenosis [Unknown]
  - Crohn^s disease [Recovered/Resolved]
  - Flatulence [Unknown]
  - Abdominal pain [Not Recovered/Not Resolved]
  - Gastric prolapse [Unknown]
  - Intestinal obstruction [Unknown]
  - Stoma prolapse [Unknown]
  - Gastritis [Recovering/Resolving]

NARRATIVE: CASE EVENT DATE: 20240101
